FAERS Safety Report 14111130 (Version 2)
Quarter: 2017Q4

REPORT INFORMATION
  Report Type: Spontaneous
  Country: IT (occurrence: IT)
  Receive Date: 20171020
  Receipt Date: 20171114
  Transmission Date: 20180321
  Serious: Yes (Life-Threatening, Other)
  Sender: FDA-Public Use
  Company Number: IT-PFIZER INC-2017440378

PATIENT
  Age: 39 Year
  Sex: Female

DRUGS (2)
  1. CYTOTEC [Suspect]
     Active Substance: MISOPROSTOL
     Indication: ABORTION SPONTANEOUS
  2. CYTOTEC [Suspect]
     Active Substance: MISOPROSTOL
     Indication: MISSED LABOUR
     Dosage: 400 UG (200 UG TWICE EVERY 3 HOURS)
     Route: 060
     Dates: start: 20170919, end: 20170919

REACTIONS (5)
  - Product use in unapproved indication [Unknown]
  - Peritoneal haemorrhage [Recovered/Resolved]
  - Uterine rupture [Recovered/Resolved with Sequelae]
  - Anaemia [Unknown]
  - Pyrexia [Unknown]

NARRATIVE: CASE EVENT DATE: 20170919
